FAERS Safety Report 7765648-5 (Version None)
Quarter: 2011Q3

REPORT INFORMATION
  Report Type: 
  Country: None (occurrence: None)
  Receive Date: 20110921
  Receipt Date: 20110831
  Transmission Date: 20111222
  Serious: Yes (Other)
  Sender: FDA-Public Use
  Company Number: PHEH2011US02816

PATIENT
  Sex: Male
  Weight: 68.027 kg

DRUGS (1)
  1. EXJADE [Suspect]
     Indication: SICKLE CELL ANAEMIA
     Dosage: 500 MG, TID
     Route: 048
     Dates: start: 20060513

REACTIONS (1)
  - WEIGHT DECREASED [None]
